FAERS Safety Report 4613439-6 (Version None)
Quarter: 2005Q1

REPORT INFORMATION
  Report Type: 
  Country: None (occurrence: None)
  Receive Date: 20050317
  Receipt Date: 20050317
  Transmission Date: 20050727
  Serious: Yes (Other)
  Sender: FDA-Public Use
  Company Number: None

PATIENT
  Age: 39 Year
  Sex: Male
  Weight: 124.2856 kg

DRUGS (8)
  1. PROZAC [Suspect]
     Indication: DISEASE RECURRENCE
     Dosage: ONE TA PO AM + PM
     Route: 048
     Dates: start: 20050104, end: 20050301
  2. PROZAC [Suspect]
     Indication: MAJOR DEPRESSION
     Dosage: ONE TA PO AM + PM
     Route: 048
     Dates: start: 20050104, end: 20050301
  3. FLOVENT [Concomitant]
  4. ALBUTEROL [Concomitant]
  5. NEXIUM [Concomitant]
  6. TOPAMAX [Concomitant]
  7. ZYRTEC [Concomitant]
  8. AMITRIPTYLINE [Concomitant]

REACTIONS (6)
  - ABDOMINAL PAIN UPPER [None]
  - CONDITION AGGRAVATED [None]
  - DIARRHOEA [None]
  - DYSGEUSIA [None]
  - GASTROOESOPHAGEAL REFLUX DISEASE [None]
  - HEADACHE [None]
